FAERS Safety Report 22597108 (Version 1)
Quarter: 2023Q2

REPORT INFORMATION
  Report Type: Report from Study
  Country: GB (occurrence: GB)
  Receive Date: 20230613
  Receipt Date: 20230613
  Transmission Date: 20230722
  Serious: Yes (Other)
  Sender: FDA-Public Use
  Company Number: GB-CELLTRION INC.-2023GB011893

PATIENT

DRUGS (28)
  1. BEVACIZUMAB [Suspect]
     Active Substance: BEVACIZUMAB
     Indication: Non-small cell lung cancer
     Dosage: 1200 MG
     Route: 042
     Dates: start: 20210416
  2. ATEZOLIZUMAB [Suspect]
     Active Substance: ATEZOLIZUMAB
     Indication: Non-small cell lung cancer
     Dosage: 1200 MG
     Route: 042
     Dates: start: 20210416
  3. CARBOPLATIN [Suspect]
     Active Substance: CARBOPLATIN
     Dosage: 400 MG
     Route: 065
     Dates: start: 20210416
  4. PACLITAXEL [Suspect]
     Active Substance: PACLITAXEL
     Dosage: 270 MG
     Route: 065
     Dates: start: 20210416
  5. CHLORPHENIRAMINE MALEATE [Concomitant]
     Active Substance: CHLORPHENIRAMINE MALEATE
     Dosage: 19 MG
     Route: 065
     Dates: start: 20210416, end: 20210416
  6. DEXAMETHASONE [Concomitant]
     Active Substance: DEXAMETHASONE
     Dosage: 13.2 MG
     Route: 065
     Dates: start: 20210531, end: 20210531
  7. DEXAMETHASONE [Concomitant]
     Active Substance: DEXAMETHASONE
     Dosage: 16.5 MG
     Route: 065
     Dates: start: 20210416, end: 20210416
  8. DEXAMETHASONE [Concomitant]
     Active Substance: DEXAMETHASONE
     Dosage: 16.5 MG
     Route: 065
     Dates: start: 20210621, end: 20210621
  9. DOMPERIDONE [Concomitant]
     Active Substance: DOMPERIDONE
  10. CALCIUM CARBONATE\CHOLECALCIFEROL [Concomitant]
     Active Substance: CALCIUM CARBONATE\CHOLECALCIFEROL
     Dosage: DOSE: 2 ONCE A DAY
     Route: 065
  11. FAMOTIDINE [Concomitant]
     Active Substance: FAMOTIDINE
     Dosage: 20 MG
     Route: 065
     Dates: start: 20210416, end: 20210416
  12. FAMOTIDINE [Concomitant]
     Active Substance: FAMOTIDINE
     Dosage: 20 MG
     Route: 065
     Dates: start: 20210621, end: 20210621
  13. FAMOTIDINE [Concomitant]
     Active Substance: FAMOTIDINE
     Dosage: 20 MG
     Route: 065
     Dates: start: 20210531, end: 20210531
  14. FELODIPINE [Concomitant]
     Active Substance: FELODIPINE
     Dosage: 20 MG, ONCE A DAY
     Route: 065
     Dates: start: 20210416, end: 20210416
  15. FLUOXETINE [Concomitant]
     Active Substance: FLUOXETINE HYDROCHLORIDE
     Indication: Prophylaxis
     Dosage: DOSE: 1, ONCE A DAY
     Route: 065
     Dates: start: 20211011
  16. LACTULOSE [Concomitant]
     Active Substance: LACTULOSE
  17. LEVOTHYROXINE [Concomitant]
     Active Substance: LEVOTHYROXINE
     Dosage: DOSE: 2, ONCE A DAY
     Route: 065
  18. LORAZEPAM [Concomitant]
     Active Substance: LORAZEPAM
     Dosage: UNK
     Route: 065
     Dates: start: 20211011
  19. MAGNESIUM ASPARTATE [Concomitant]
     Active Substance: MAGNESIUM ASPARTATE
  20. METOCLOPRAMIDE [Concomitant]
     Active Substance: METOCLOPRAMIDE
     Dosage: UNK
     Route: 065
     Dates: start: 20210914
  21. OMEPRAZOLE [Concomitant]
     Active Substance: OMEPRAZOLE
     Indication: Prophylaxis
     Dosage: DOSE: 2, ONCE A DAY
     Route: 065
  22. ONDANSETRON [Concomitant]
     Active Substance: ONDANSETRON
     Dosage: 16 MG
     Route: 065
     Dates: start: 20210621, end: 20210621
  23. ONDANSETRON [Concomitant]
     Active Substance: ONDANSETRON
     Dosage: 16 MG
     Route: 065
     Dates: start: 20210531, end: 20210531
  24. ONDANSETRON [Concomitant]
     Active Substance: ONDANSETRON
     Dosage: 16 MG
     Route: 065
     Dates: start: 20210416, end: 20210416
  25. ACETAMINOPHEN [Concomitant]
     Active Substance: ACETAMINOPHEN
     Dosage: UNK
     Route: 065
     Dates: start: 20220510
  26. PREDNISOLONE [Concomitant]
     Active Substance: PREDNISOLONE
     Dosage: DOSE: 1, ONCE A DAY
     Route: 065
     Dates: start: 20210512, end: 20210804
  27. PREDNISOLONE [Concomitant]
     Active Substance: PREDNISOLONE
     Dosage: DOSE: 1, ONCE A DAY
     Route: 065
     Dates: start: 20211210, end: 20220204
  28. COVID-19 VACCINE [Concomitant]

REACTIONS (3)
  - Liver function test abnormal [Recovered/Resolved]
  - Constipation [Not Recovered/Not Resolved]
  - Autoimmune hepatitis [Recovered/Resolved]

NARRATIVE: CASE EVENT DATE: 20210506
